FAERS Safety Report 6231786-1 (Version None)
Quarter: 2009Q2

REPORT INFORMATION
  Report Type: 
  Country: None (occurrence: None)
  Receive Date: 20090612
  Receipt Date: 20090612
  Transmission Date: 20091009
  Serious: Yes (Other)
  Sender: FDA-Public Use
  Company Number: None

PATIENT
  Sex: Female
  Weight: 60.782 kg

DRUGS (1)
  1. LEVAQUIN [Suspect]
     Indication: URINARY TRACT INFECTION
     Dosage: TAKE 500MG ONCE DAILY PO
     Route: 048
     Dates: start: 20090522, end: 20090524

REACTIONS (1)
  - URETHRAL HAEMORRHAGE [None]
